FAERS Safety Report 8666648 (Version 3)
Quarter: 2012Q4

REPORT INFORMATION
  Report Type: 
  Country: US (occurrence: US)
  Receive Date: 20120716
  Receipt Date: 20121218
  Transmission Date: 20130627
  Serious: Yes (Hospitalization, Other)
  Sender: FDA-Public Use
  Company Number: US-PFIZER INC-2012127444

PATIENT
  Age: 53 Year
  Sex: Female
  Weight: 58.5 kg

DRUGS (40)
  1. BLINDED CELECOXIB [Suspect]
     Indication: OSTEOARTHRITIS
     Dosage: high dose, 3x/day
     Route: 048
     Dates: start: 20110110, end: 20110914
  2. BLINDED IBUPROFEN [Suspect]
     Indication: OSTEOARTHRITIS
     Dosage: high dose, 3x/day
     Route: 048
     Dates: start: 20110110, end: 20110914
  3. BLINDED IBUPROFEN [Suspect]
     Indication: OSTEOARTHRITIS
     Dosage: high dose, 3x/day
     Route: 048
     Dates: start: 20110110, end: 20110914
  4. BLINDED IBUPROFEN [Suspect]
     Indication: OSTEOARTHRITIS
     Dosage: high dose, 3x/day
     Route: 048
     Dates: start: 20110110, end: 20110914
  5. BLINDED NAPROXEN [Suspect]
     Indication: OSTEOARTHRITIS
     Dosage: high dose, 3x/day
     Route: 048
     Dates: start: 20110110, end: 20110914
  6. BLINDED NAPROXEN [Suspect]
     Indication: OSTEOARTHRITIS
     Dosage: high dose, 3x/day
     Route: 048
     Dates: start: 20110110, end: 20110914
  7. BLINDED NAPROXEN [Suspect]
     Indication: OSTEOARTHRITIS
     Dosage: high dose, 3x/day
     Route: 048
     Dates: start: 20110110, end: 20110914
  8. BLINDED NO SUBJECT DRUG [Suspect]
     Indication: OSTEOARTHRITIS
     Dosage: high dose, 3x/day
     Route: 048
     Dates: start: 20110110, end: 20110914
  9. BLINDED PLACEBO [Suspect]
     Indication: OSTEOARTHRITIS
     Dosage: high dose, 3x/day
     Route: 048
     Dates: start: 20110110, end: 20110914
  10. BLINDED CELECOXIB [Suspect]
     Indication: RHEUMATOID ARTHRITIS
  11. BLINDED IBUPROFEN [Suspect]
     Indication: RHEUMATOID ARTHRITIS
  12. BLINDED IBUPROFEN [Suspect]
     Indication: RHEUMATOID ARTHRITIS
  13. BLINDED IBUPROFEN [Suspect]
     Indication: RHEUMATOID ARTHRITIS
  14. BLINDED NAPROXEN [Suspect]
     Indication: RHEUMATOID ARTHRITIS
  15. BLINDED NAPROXEN [Suspect]
     Indication: RHEUMATOID ARTHRITIS
  16. BLINDED NAPROXEN [Suspect]
     Indication: RHEUMATOID ARTHRITIS
  17. BLINDED NO SUBJECT DRUG [Suspect]
     Indication: RHEUMATOID ARTHRITIS
  18. BLINDED PLACEBO [Suspect]
     Indication: RHEUMATOID ARTHRITIS
  19. ATIVAN [Suspect]
     Indication: ANXIETY
     Dosage: 0.5 mg, 2x/day
     Route: 048
     Dates: start: 20110518
  20. OXYCODONE HYDROCHLORIDE [Suspect]
     Indication: CHRONIC PAIN
     Dosage: 30 mg, 2x/day
     Route: 048
     Dates: start: 20110126, end: 20110914
  21. OXYCONTIN [Suspect]
     Indication: CHRONIC PAIN
     Dosage: 80 mg, 2x/day
     Route: 048
     Dates: start: 20110126, end: 20110914
  22. NEXIUM [Concomitant]
     Indication: PROPHYLAXIS
     Dosage: 40 mg, 1x/day
     Route: 048
     Dates: start: 20110110, end: 20110913
  23. LEVOTHYROXINE [Concomitant]
     Indication: HYPOTHYROIDISM
     Dosage: 137 ug, 1x/day
     Route: 048
     Dates: start: 20091228
  24. GLIMEPIRIDE [Concomitant]
     Indication: TYPE 2 DIABETES MELLITUS
     Dosage: 4 mg, 2x/day
     Route: 048
     Dates: start: 20091228
  25. POTASSIUM CHLORIDE [Concomitant]
     Indication: ROUTINE HEALTH MAINTENANCE
     Dosage: 12 mEq, 1x/day
     Route: 048
     Dates: start: 20091228
  26. ZOCOR [Concomitant]
     Indication: DYSLIPIDEMIA
     Dosage: 500/20 mg, 1x/day
     Route: 048
     Dates: start: 20091228
  27. SAVELLA [Concomitant]
     Indication: FIBROMYALGIA
     Dosage: 50 ug, 2x/day
     Route: 048
     Dates: start: 20091228
  28. SOMA [Concomitant]
     Indication: MUSCLE RELAXANT
     Dosage: 350 mg, 3x/day
     Route: 048
     Dates: start: 20091228
  29. TIOTROPIUM [Concomitant]
     Indication: COPD
     Dosage: 18 ug, 2x/day, inhaled
     Route: 045
     Dates: start: 20091228
  30. PREMPRO [Concomitant]
     Indication: ESTROGEN
     Dosage: 0.625 mg, 2 QD
     Route: 048
     Dates: start: 20091228
  31. ACETAMINOPHEN [Concomitant]
     Indication: HEADACHE
     Dosage: Q 6h
     Route: 048
     Dates: start: 20091228
  32. SINGULAIR [Concomitant]
     Indication: COPD
     Dosage: 10 mg, hs, inhaled
     Route: 045
     Dates: start: 20091228
  33. SYMBICORT [Concomitant]
     Indication: COPD
     Dosage: 2 puffs, 2x/day, inhaled
     Route: 045
     Dates: start: 20091228
  34. FLUOXETINE [Concomitant]
     Indication: DEPRESSION
     Dosage: 40 mg, 1x/day
     Route: 048
     Dates: start: 20091228
  35. ONGLYZA [Concomitant]
     Indication: TYPE 2 DIABETES MELLITUS
     Dosage: 5 mg, 1x/day
     Route: 048
     Dates: start: 20091228
  36. BYSTOLIC [Concomitant]
     Indication: HYPERTENSION
     Dosage: 10 mg, hs
     Route: 048
     Dates: start: 20091228
  37. SEROQUEL [Concomitant]
     Indication: BIPOLAR DISORDER
     Dosage: 200 mg, 3 tab QD hs
     Route: 048
     Dates: start: 20091228
  38. LASIX [Concomitant]
     Indication: HYPERTENSION
     Dosage: 40 mg, 1x/day
     Route: 048
     Dates: start: 20091228
  39. FLONASE [Concomitant]
     Indication: RHINITIS
     Dosage: 2 sprays, 2x/day
     Route: 045
     Dates: start: 20091228
  40. ROPINIROLE HYDROCHLORIDE [Concomitant]
     Indication: RESTLESS LEG SYNDROME
     Dosage: 1 mg, 1x/day
     Route: 048
     Dates: start: 20091228

REACTIONS (1)
  - Renal failure acute [Recovered/Resolved]
